FAERS Safety Report 4567817-4 (Version None)
Quarter: 2005Q1

REPORT INFORMATION
  Report Type: 
  Country: None (occurrence: None)
  Receive Date: 20050202
  Receipt Date: 20040909
  Transmission Date: 20050727
  Serious: No
  Sender: FDA-Public Use
  Company Number: US-GLAXOSMITHKLINE-A0525045A

PATIENT
  Age: 67 Year
  Sex: Female
  Weight: 114.5 kg

DRUGS (11)
  1. AVANDAMET [Suspect]
     Indication: DIABETES MELLITUS NON-INSULIN-DEPENDENT
     Dosage: 1TAB TWICE PER DAY
     Route: 048
  2. AVANDIA [Suspect]
     Indication: DIABETES MELLITUS NON-INSULIN-DEPENDENT
     Dosage: 4MG PER DAY
     Route: 048
  3. HYZAAR [Concomitant]
     Indication: HYPERTENSION
     Route: 048
     Dates: start: 20001115
  4. VITAMIN C [Concomitant]
  5. VITAMIN E [Concomitant]
  6. GARLIC [Concomitant]
  7. VITAMIN A [Concomitant]
  8. VITAMIN D [Concomitant]
  9. BETA-CAROTENE [Concomitant]
  10. VITAMIN B SUPPLEMENT [Concomitant]
  11. MULTI-VITAMIN [Concomitant]

REACTIONS (2)
  - DRUG INEFFECTIVE [None]
  - FLATULENCE [None]
